FAERS Safety Report 6006393-6 (Version None)
Quarter: 2008Q4

REPORT INFORMATION
  Report Type: 
  Country: None (occurrence: None)
  Receive Date: 20081217
  Receipt Date: 20081205
  Transmission Date: 20090506
  Serious: Yes (Other)
  Sender: FDA-Public Use
  Company Number: US-BAYER-200814823BCC

PATIENT
  Sex: Female
  Weight: 59 kg

DRUGS (3)
  1. NEO-SYNEPHRINE EXTRA STRENGTH 1% SPRAY [Suspect]
     Indication: NASAL OEDEMA
     Route: 045
  2. NEO-SYNEPHRINE EXTRA STRENGTH 1% SPRAY [Suspect]
     Route: 045
  3. SUDAFED 12 HOUR [Concomitant]

REACTIONS (1)
  - DRUG DEPENDENCE [None]
